FAERS Safety Report 6130866-9 (Version None)
Quarter: 2009Q1

REPORT INFORMATION
  Report Type: 
  Country: None (occurrence: None)
  Receive Date: 20090325
  Receipt Date: 20090323
  Transmission Date: 20090719
  Serious: Yes (Other)
  Sender: FDA-Public Use
  Company Number: US-BRISTOL-MYERS SQUIBB COMPANY-14437511

PATIENT
  Age: 75 Year
  Sex: Male

DRUGS (3)
  1. COUMADIN [Suspect]
     Indication: TRANSIENT ISCHAEMIC ATTACK
     Dosage: TEMPORARILY STOPPED.
     Dates: start: 20050101
  2. PLAVIX [Suspect]
     Indication: STENT PLACEMENT
     Dosage: STRENGTH 75MG
     Route: 048
     Dates: start: 20081018
  3. ASPIRIN [Suspect]
     Dates: start: 20081018

REACTIONS (3)
  - ARTERIAL OCCLUSIVE DISEASE [None]
  - GASTRITIS [None]
  - HAEMOGLOBIN DECREASED [None]
